FAERS Safety Report 23530507 (Version 6)
Quarter: 2025Q2

REPORT INFORMATION
  Report Type: Report from Study
  Country: IN (occurrence: IN)
  Receive Date: 20240216
  Receipt Date: 20250418
  Transmission Date: 20250717
  Serious: Yes (Hospitalization, Other)
  Sender: NOVARTIS
  Company Number: IN-002147023-NVSC2023IN012810

PATIENT
  Age: 75 Year
  Sex: Female

DRUGS (11)
  1. RIBOCICLIB [Suspect]
     Active Substance: RIBOCICLIB
     Indication: Breast cancer metastatic
     Dosage: 400 MG, QD
     Route: 048
     Dates: start: 20210623
  2. RIBOCICLIB [Suspect]
     Active Substance: RIBOCICLIB
     Indication: Hormone receptor positive HER2 negative breast cancer
     Dosage: 400 MG, QD (400 MG OD FOR 21 DAYS AND 7 DAYS OFF)
     Route: 048
     Dates: start: 20210630, end: 20230106
  3. RIBOCICLIB [Suspect]
     Active Substance: RIBOCICLIB
     Indication: Breast cancer
     Dosage: 400 MG, QD (400 MG QD FOR 21 DAYS AND 7 DAYS OFF)
     Route: 048
     Dates: start: 20230107
  4. RIBOCICLIB [Suspect]
     Active Substance: RIBOCICLIB
     Dosage: 400 MG, QD (400 MG QD FOR 21 DAYS AND 7 DAYS OFF)
     Route: 048
     Dates: start: 20230301
  5. RIBOCICLIB [Suspect]
     Active Substance: RIBOCICLIB
     Dosage: 400 MG, QD (400 MG QD FOR 21 DAYS AND 10 DAYS OFF)
     Route: 048
     Dates: start: 20230327
  6. RIBOCICLIB [Suspect]
     Active Substance: RIBOCICLIB
     Dosage: 400 MG, QD (FOR 21 DAYS AND 10 DAYS OFF)
     Route: 048
     Dates: start: 20230512
  7. RIBOCICLIB [Suspect]
     Active Substance: RIBOCICLIB
     Dosage: 400 MG, QD (FOR 21 DAYS AND 7 DAYS OFF)
     Route: 048
     Dates: start: 20230725
  8. RIBOCICLIB [Suspect]
     Active Substance: RIBOCICLIB
     Dosage: 400 MG, QD (FOR 21 DAYS AND 10 DAYS OFF)
     Route: 048
     Dates: start: 20230927
  9. RIBOCICLIB [Suspect]
     Active Substance: RIBOCICLIB
     Dosage: 400 MG, QD (200MG X 2 TAB FOR 21 DAYS THEN STOP FOR 10 DAYS)
     Route: 048
     Dates: start: 20240506
  10. RIBOCICLIB [Suspect]
     Active Substance: RIBOCICLIB
     Dosage: 400 MG, QD, 200MG 2TAB PO OD FOR 21 DAYS THEN STOP FOR 10 DAYS, CONTINUE IN SAME MANNER FOR 3 MONTHS
     Route: 048
     Dates: start: 20240623
  11. FASLODEX [Concomitant]
     Active Substance: FULVESTRANT
     Indication: Product used for unknown indication
     Route: 065

REACTIONS (13)
  - Alopecia [Recovered/Resolved]
  - Back pain [Recovered/Resolved]
  - Pyrexia [Recovered/Resolved]
  - Decreased appetite [Recovered/Resolved]
  - Asthenia [Recovered/Resolved]
  - Cerebral mass effect [Unknown]
  - Subdural haematoma [Unknown]
  - Metabolic disorder [Unknown]
  - Inappropriate schedule of product administration [Unknown]
  - Bone lesion [Unknown]
  - Performance status decreased [Unknown]
  - Escherichia infection [Unknown]
  - Urinary tract infection bacterial [Unknown]

NARRATIVE: CASE EVENT DATE: 20210601
